FAERS Safety Report 7463512-2 (Version None)
Quarter: 2011Q2

REPORT INFORMATION
  Report Type: 
  Country: None (occurrence: None)
  Receive Date: 20110506
  Receipt Date: 20110502
  Transmission Date: 20111010
  Serious: Yes (Death, Hospitalization, Other)
  Sender: FDA-Public Use
  Company Number: PHHY2011FR37001

PATIENT
  Sex: Male

DRUGS (1)
  1. AFINITOR [Suspect]
     Indication: RENAL CELL CARCINOMA
     Dosage: 10 MG, DAILY
     Route: 048
     Dates: start: 20101028, end: 20110303

REACTIONS (17)
  - HYPOKALAEMIA [None]
  - HYPERTENSION [None]
  - HYPOTENSION [None]
  - BLOOD CREATININE INCREASED [None]
  - HYPONATRAEMIA [None]
  - ELECTROCARDIOGRAM T WAVE AMPLITUDE DECREASED [None]
  - HYPERTRIGLYCERIDAEMIA [None]
  - DIARRHOEA [None]
  - LUNG DISORDER [None]
  - DYSPNOEA [None]
  - OEDEMA PERIPHERAL [None]
  - RENAL FAILURE [None]
  - SHOCK [None]
  - DEATH [None]
  - DECREASED APPETITE [None]
  - ELECTROCARDIOGRAM LOW VOLTAGE [None]
  - SINUS TACHYCARDIA [None]
